FAERS Safety Report 17847291 (Version 1)
Quarter: 2020Q2

REPORT INFORMATION
  Report Type: Spontaneous
  Country: US (occurrence: US)
  Receive Date: 20200601
  Receipt Date: 20200601
  Transmission Date: 20200714
  Serious: No
  Sender: FDA-Public Use
  Company Number: US-VERTEX PHARMACEUTICALS-2020-011654

PATIENT
  Age: 38 Year
  Sex: Male

DRUGS (6)
  1. ALBUTEROL. [Concomitant]
     Active Substance: ALBUTEROL
  2. CREON [Concomitant]
     Active Substance: PANCRELIPASE AMYLASE\PANCRELIPASE LIPASE\PANCRELIPASE PROTEASE
  3. VITAMIN K [Concomitant]
     Active Substance: PHYTONADIONE
  4. MOTRIN [Concomitant]
     Active Substance: IBUPROFEN
  5. TRIKAFTA [Suspect]
     Active Substance: ELEXACAFTOR\IVACAFTOR\TEZACAFTOR
     Indication: CYSTIC FIBROSIS
     Dosage: 2 TAB AM(100MG ELEXACAFTOR/50MG TEZACAFTOR/75MG IVACAFTOR ) AND 1 TAB (150MG IVACAFTOR) PM
     Route: 048
     Dates: start: 20191231
  6. VITAMIN C [Concomitant]
     Active Substance: ASCORBIC ACID

REACTIONS (3)
  - Psychomotor hyperactivity [Not Recovered/Not Resolved]
  - Insomnia [Not Recovered/Not Resolved]
  - Tachyphrenia [Not Recovered/Not Resolved]

NARRATIVE: CASE EVENT DATE: 201912
